FAERS Safety Report 7786282-7 (Version None)
Quarter: 2011Q3

REPORT INFORMATION
  Report Type: 
  Country: None (occurrence: None)
  Receive Date: 20110929
  Receipt Date: 20110916
  Transmission Date: 20111222
  Serious: Yes (Hospitalization, Other)
  Sender: FDA-Public Use
  Company Number: PHHO2011JP14108

PATIENT
  Sex: Female
  Weight: 52 kg

DRUGS (1)
  1. LETROZOLE [Suspect]
     Indication: BREAST CANCER
     Dosage: 2.5 MG, UNK
     Route: 048
     Dates: start: 20071010

REACTIONS (2)
  - INTRA-ABDOMINAL HAEMATOMA [None]
  - MENINGIOMA BENIGN [None]
